FAERS Safety Report 6475681-1 (Version None)
Quarter: 2009Q4

REPORT INFORMATION
  Report Type: 
  Country: None (occurrence: None)
  Receive Date: 20091204
  Receipt Date: 20091130
  Transmission Date: 20100525
  Serious: Yes (Other)
  Sender: FDA-Public Use
  Company Number: BR-TEVA-216524USA

PATIENT
  Sex: Female

DRUGS (1)
  1. DESOGESTREL AND ETHINYL ESTRADIOL [Suspect]
     Indication: CONTRACEPTION
     Dosage: 150MCG/10MCG
     Route: 048
     Dates: start: 20090901

REACTIONS (3)
  - MENSTRUATION IRREGULAR [None]
  - MOOD SWINGS [None]
  - PNEUMONIA [None]
